FAERS Safety Report 7574183-9 (Version None)
Quarter: 2011Q2

REPORT INFORMATION
  Report Type: 
  Country: None (occurrence: None)
  Receive Date: 20110627
  Receipt Date: 20110620
  Transmission Date: 20111010
  Serious: Yes (Hospitalization, Other)
  Sender: FDA-Public Use
  Company Number: PHHO2011US09720

PATIENT
  Sex: Female
  Weight: 63.6 kg

DRUGS (3)
  1. AFINITOR [Suspect]
     Indication: GLIOBLASTOMA
     Dosage: 2.5 MG, DAILY
     Route: 048
     Dates: start: 20110505, end: 20110606
  2. TEMOZOLOMIDE [Suspect]
     Indication: GLIOBLASTOMA
     Dosage: 75 MG/M2, UNK
     Dates: start: 20110505, end: 20110606
  3. RADIATION THERAPY [Concomitant]

REACTIONS (6)
  - NEUTROPENIA [None]
  - ANAEMIA [None]
  - THROMBOCYTOPENIA [None]
  - WHITE BLOOD CELL COUNT DECREASED [None]
  - FEBRILE NEUTROPENIA [None]
  - LYMPHOCYTE COUNT DECREASED [None]
